FAERS Safety Report 9885913 (Version 1)
Quarter: 2014Q1

REPORT INFORMATION
  Report Type: Spontaneous
  Country: US (occurrence: US)
  Receive Date: 20140210
  Receipt Date: 20140210
  Transmission Date: 20141002
  Serious: Yes (Death, Life-Threatening, Hospitalization, Other)
  Sender: FDA-Public Use
  Company Number: US-WATSON-2014-01777

PATIENT
  Age: 55 Year
  Sex: Female

DRUGS (1)
  1. HYDROXYCHLOROQUINE SULFATE (WATSON LABORATORIES) [Suspect]
     Indication: PRODUCT USED FOR UNKNOWN INDICATION
     Dosage: 400 MG, DAILY
     Route: 065

REACTIONS (2)
  - Cytotoxic cardiomyopathy [Fatal]
  - Myopathy toxic [Fatal]
